FAERS Safety Report 17092677 (Version 1)
Quarter: 2019Q4

REPORT INFORMATION
  Report Type: Spontaneous
  Country: US (occurrence: US)
  Receive Date: 20191129
  Receipt Date: 20191129
  Transmission Date: 20200122
  Serious: No
  Sender: FDA-Public Use
  Company Number: US-ASTRAZENECA-2019SF57068

PATIENT
  Sex: Female

DRUGS (2)
  1. BYDUREON BCISE [Suspect]
     Active Substance: EXENATIDE
     Indication: BLOOD GLUCOSE ABNORMAL
     Dosage: 2.0MG UNKNOWN
     Route: 058
  2. BYDUREON [Suspect]
     Active Substance: EXENATIDE
     Dosage: UNKNOWN
     Route: 065

REACTIONS (6)
  - Product dose omission [Unknown]
  - Injection site haemorrhage [Unknown]
  - Device use issue [Unknown]
  - Incorrect dose administered by device [Unknown]
  - Needle issue [Unknown]
  - Hypoacusis [Unknown]
